FAERS Safety Report 8102482-0 (Version None)
Quarter: 2012Q1

REPORT INFORMATION
  Report Type: 
  Country: None (occurrence: None)
  Receive Date: 20120201
  Receipt Date: 20120123
  Transmission Date: 20120608
  Serious: Yes (Other)
  Sender: FDA-Public Use
  Company Number: US-ELI_LILLY_AND_COMPANY-US200802004575

PATIENT
  Sex: Male
  Weight: 63.49 kg

DRUGS (4)
  1. ANTIPSYCHOTICS [Concomitant]
     Dates: start: 19840101, end: 20050101
  2. CLOZARIL [Concomitant]
  3. ZYPREXA [Suspect]
     Indication: SCHIZOPHRENIA
     Dosage: 20 MG, UNK
     Dates: start: 19980101, end: 20040101
  4. SEROQUEL [Concomitant]

REACTIONS (4)
  - HEPATITIS C [None]
  - ABDOMINAL PAIN UPPER [None]
  - PANCREATITIS [None]
  - DIABETES MELLITUS [None]
